FAERS Safety Report 15336248 (Version 1)
Quarter: 2018Q3

REPORT INFORMATION
  Report Type: Spontaneous
  Country: DE (occurrence: DE)
  Receive Date: 20180830
  Receipt Date: 20180830
  Transmission Date: 20181010
  Serious: Yes (Hospitalization)
  Sender: FDA-Public Use
  Company Number: DE-PFIZER INC-2018350364

PATIENT
  Sex: Male

DRUGS (1)
  1. RAMIPRIL. [Suspect]
     Active Substance: RAMIPRIL
     Dosage: UNK
     Route: 048
     Dates: start: 201801

REACTIONS (5)
  - Skin haemorrhage [Recovered/Resolved]
  - Anxiety [Unknown]
  - Hypersensitivity [Recovered/Resolved]
  - Blood urine present [Unknown]
  - Epistaxis [Unknown]

NARRATIVE: CASE EVENT DATE: 201801
